FAERS Safety Report 10983165 (Version 1)
Quarter: 2015Q2

REPORT INFORMATION
  Report Type: Spontaneous
  Country: US (occurrence: US)
  Receive Date: 20150403
  Receipt Date: 20150403
  Transmission Date: 20150821
  Serious: Yes (Hospitalization, Other)
  Sender: FDA-Public Use
  Company Number: US-ELI_LILLY_AND_COMPANY-US201503008222

PATIENT
  Sex: Female

DRUGS (3)
  1. CYMBALTA [Suspect]
     Active Substance: DULOXETINE HYDROCHLORIDE
     Indication: DEPRESSION
     Dosage: 60 MG, UNKNOWN
     Route: 065
     Dates: start: 2006
  2. CYMBALTA [Suspect]
     Active Substance: DULOXETINE HYDROCHLORIDE
     Indication: PAIN
     Dosage: 120 MG, QD
     Route: 065
  3. HYDROCHLOROTHIAZIDE. [Concomitant]
     Active Substance: HYDROCHLOROTHIAZIDE
     Indication: PRODUCT USED FOR UNKNOWN INDICATION
     Dosage: 25MG, UNKNOWN
     Route: 065

REACTIONS (13)
  - Depression [Unknown]
  - Thyroid cancer [Unknown]
  - Feeling abnormal [Unknown]
  - Asthma [Unknown]
  - Fatigue [Unknown]
  - Intervertebral disc protrusion [Unknown]
  - Fibromyalgia [Unknown]
  - Vitamin D decreased [Unknown]
  - Sleep apnoea syndrome [Unknown]
  - Dyspnoea [Unknown]
  - Asthenia [Unknown]
  - Abdominal distension [Unknown]
  - Influenza [Unknown]
